FAERS Safety Report 4986632-0 (Version None)
Quarter: 2006Q2

REPORT INFORMATION
  Report Type: 
  Country: None (occurrence: None)
  Receive Date: 20060428
  Receipt Date: 20060406
  Transmission Date: 20061013
  Serious: Yes (Hospitalization)
  Sender: FDA-Public Use
  Company Number: BW-BRISTOL-MYERS SQUIBB COMPANY-13339189

PATIENT
  Age: 45 Year
  Sex: Female

DRUGS (3)
  1. DIDANOSINE [Suspect]
     Dates: start: 20030331, end: 20060314
  2. NEVIRAPINE [Suspect]
     Dates: start: 20030331, end: 20060314
  3. ZIDOVUDINE [Suspect]
     Dates: start: 20030331, end: 20060314

REACTIONS (1)
  - PANCYTOPENIA [None]
